FAERS Safety Report 9593883 (Version 1)
Quarter: 2013Q4

REPORT INFORMATION
  Report Type: Spontaneous
  Country: US (occurrence: None)
  Receive Date: 20131002
  Receipt Date: 20131002
  Transmission Date: 20140711
  Serious: Yes (Other)
  Sender: FDA-Public Use
  Company Number: AUR-APL-2013-08164

PATIENT
  Age: 80 Year
  Sex: Female
  Weight: 117 kg

DRUGS (4)
  1. GABAPENTIN [Suspect]
     Indication: NEUROPATHY PERIPHERAL
     Dosage: 100 MG IN MORNING, 100 MG IN AFTERNOON AND 300 MG AT NIGHT,ORAL
     Route: 048
  2. LOSARTAN (LOSARTAN) [Suspect]
     Indication: DIVERTICULUM
  3. PREDNISONE (PREDNISONE) [Suspect]
     Indication: MYALGIA
     Route: 048
  4. FISH OIL (FISH OIL) [Concomitant]

REACTIONS (8)
  - Drug ineffective [None]
  - Optic ischaemic neuropathy [None]
  - Arterial occlusive disease [None]
  - Blindness unilateral [None]
  - Weight increased [None]
  - Blood pressure increased [None]
  - Off label use [None]
  - Renal disorder [None]
